FAERS Safety Report 9882737 (Version 2)
Quarter: 2014Q1

REPORT INFORMATION
  Report Type: Report from Study
  Country: CA (occurrence: CA)
  Receive Date: 20140207
  Receipt Date: 20140207
  Transmission Date: 20141002
  Serious: Yes (Hospitalization)
  Sender: FDA-Public Use
  Company Number: CA-ABBVIE-13P-028-1099594-00

PATIENT
  Age: 43 Year
  Sex: Male

DRUGS (3)
  1. HUMIRA [Suspect]
     Indication: CROHN^S DISEASE
     Dosage: LOADING DOSE
     Route: 058
     Dates: start: 20130524, end: 20130524
  2. HUMIRA [Suspect]
     Dosage: LOADING DOSE
     Route: 058
     Dates: start: 201306
  3. WARFARIN [Suspect]

REACTIONS (4)
  - Small intestinal obstruction [Recovered/Resolved]
  - International normalised ratio increased [Recovered/Resolved]
  - White blood cell count increased [Unknown]
  - Crohn^s disease [Recovered/Resolved]
